FAERS Safety Report 4528821-5 (Version None)
Quarter: 2004Q4

REPORT INFORMATION
  Report Type: 
  Country: None (occurrence: None)
  Receive Date: 20041216
  Receipt Date: 20041005
  Transmission Date: 20050328
  Serious: Yes (Other)
  Sender: FDA-Public Use
  Company Number: JP-GLAXOSMITHKLINE-B0347804A

PATIENT
  Age: 54 Year
  Sex: Male
  Weight: 112 kg

DRUGS (6)
  1. FLUTIDE DISKUS [Suspect]
     Indication: ASTHMA
     Dosage: 200MCG TWICE PER DAY
     Route: 055
  2. PREDNISOLONE [Concomitant]
     Route: 065
  3. ONON [Concomitant]
     Indication: ASTHMA
     Route: 048
  4. UNIPHYL [Concomitant]
     Indication: ASTHMA
     Route: 048
  5. NORVASC [Concomitant]
     Indication: HYPERTENSION
     Route: 048
     Dates: start: 20021207
  6. ASPIRIN [Concomitant]

REACTIONS (6)
  - BLOOD PRESSURE INCREASED [None]
  - CUSHING'S SYNDROME [None]
  - HYPOKALAEMIA [None]
  - HYPONATRAEMIA [None]
  - PRIMARY HYPERALDOSTERONISM [None]
  - WHITE BLOOD CELL COUNT INCREASED [None]
